FAERS Safety Report 9919708 (Version 3)
Quarter: 2014Q3

REPORT INFORMATION
  Report Type: Spontaneous
  Country: VE (occurrence: VE)
  Receive Date: 20140224
  Receipt Date: 20140728
  Transmission Date: 20150326
  Serious: Yes (Hospitalization)
  Sender: FDA-Public Use
  Company Number: PHHY2014VE021703

PATIENT
  Age: 9 Year
  Sex: Male
  Weight: 45 kg

DRUGS (3)
  1. TEGRETOL [Suspect]
     Active Substance: CARBAMAZEPINE
     Indication: CONVULSION
     Dosage: 400 MG, DAILY
     Dates: start: 2011, end: 201304
  2. TEGRETOL [Suspect]
     Active Substance: CARBAMAZEPINE
     Indication: CONVULSION
     Dosage: 800 MG, DAILY (4 TABLETS OF 200 MG, DAILY)
     Route: 048
     Dates: start: 201304
  3. CLONAZEPAM. [Concomitant]
     Active Substance: CLONAZEPAM
     Dosage: UNK UKN, UNK

REACTIONS (7)
  - Viral infection [Recovered/Resolved]
  - Pyrexia [Unknown]
  - Hypokalaemia [Recovered/Resolved]
  - Diarrhoea [Unknown]
  - Chromatopsia [Unknown]
  - Vomiting [Unknown]
  - Tinnitus [Recovered/Resolved]

NARRATIVE: CASE EVENT DATE: 20140127
